FAERS Safety Report 25852612 (Version 1)
Quarter: 2025Q3

REPORT INFORMATION
  Report Type: Report from Study
  Country: US (occurrence: US)
  Receive Date: 20250926
  Receipt Date: 20250926
  Transmission Date: 20251021
  Serious: Yes (Other)
  Sender: FERRING
  Company Number: US-FERRINGPH-2025FE05615

PATIENT

DRUGS (1)
  1. NADOFARAGENE FIRADENOVEC [Suspect]
     Active Substance: NADOFARAGENE FIRADENOVEC
     Indication: Bladder cancer
     Route: 043
     Dates: start: 20250228

REACTIONS (2)
  - Urinary retention [Unknown]
  - Cystoscopy abnormal [Unknown]

NARRATIVE: CASE EVENT DATE: 20250301
